FAERS Safety Report 9159410 (Version 2)
Quarter: 2013Q1

REPORT INFORMATION
  Report Type: Spontaneous
  Country: US (occurrence: None)
  Receive Date: 20130213
  Receipt Date: 20130329
  Transmission Date: 20140127
  Serious: No
  Sender: FDA-Public Use
  Company Number: JPI-P-029604

PATIENT
  Age: 42 Year
  Sex: Male

DRUGS (9)
  1. XYREM [Suspect]
     Indication: NARCOLEPSY
     Route: 048
     Dates: start: 20130123
  2. XYREM [Suspect]
     Indication: SOMNOLENCE
     Route: 048
     Dates: start: 20130123
  3. DIAZEPAM [Suspect]
     Indication: PRODUCT USED FOR UNKNOWN INDICATION
  4. MECLIZINE [Concomitant]
  5. LAMOTRIGINE [Concomitant]
  6. GABAPENTIN [Concomitant]
  7. PRIMIDONE [Concomitant]
  8. POTASSIUM [Concomitant]
  9. TOPIRAMATE [Concomitant]

REACTIONS (8)
  - Convulsion [None]
  - Nausea [None]
  - Visual impairment [None]
  - Dizziness [None]
  - Gait disturbance [None]
  - Diplopia [None]
  - Hallucination, visual [None]
  - Arthritis [None]
